FAERS Safety Report 9712636 (Version 1)
Quarter: 2013Q4

REPORT INFORMATION
  Report Type: Spontaneous
  Country: US (occurrence: US)
  Receive Date: 20131126
  Receipt Date: 20131126
  Transmission Date: 20140711
  Serious: No
  Sender: FDA-Public Use
  Company Number: US-BRISTOL-MYERS SQUIBB COMPANY-19212265

PATIENT
  Age: 75 Year
  Sex: Female
  Weight: 76.19 kg

DRUGS (3)
  1. BYDUREON 2MG SUSPENSION [Suspect]
     Indication: TYPE 2 DIABETES MELLITUS
     Route: 058
  2. METFORMIN [Concomitant]
  3. GLIMEPIRIDE [Concomitant]
     Dosage: 1DF=2MGN 11/2

REACTIONS (2)
  - Injection site haemorrhage [Recovered/Resolved]
  - Injection site nodule [Unknown]
